FAERS Safety Report 19673200 (Version 1)
Quarter: 2021Q3

REPORT INFORMATION
  Report Type: Spontaneous
  Country: US (occurrence: US)
  Receive Date: 20210809
  Receipt Date: 20210809
  Transmission Date: 20211014
  Serious: Yes (Other)
  Sender: FDA-Public Use
  Company Number: US-ACCORD-165314

PATIENT
  Age: 55 Year
  Sex: Female

DRUGS (14)
  1. METHADONE [Concomitant]
     Active Substance: METHADONE HYDROCHLORIDE
  2. DOXYCYCLINE. [Concomitant]
     Active Substance: DOXYCYCLINE
  3. DEXILANT [Concomitant]
     Active Substance: DEXLANSOPRAZOLE
  4. THYROID [Concomitant]
     Active Substance: LEVOTHYROXINE\LIOTHYRONINE
  5. PROCHLORPERAZINE. [Concomitant]
     Active Substance: PROCHLORPERAZINE
  6. DOCETAXEL ACCORD [Suspect]
     Active Substance: DOCETAXEL
     Indication: BREAST CANCER
     Dates: start: 20160824, end: 20161219
  7. BUPROPION/BUPROPION HYDROCHLORIDE [Concomitant]
     Active Substance: BUPROPION HYDROCHLORIDE
  8. LEVOFLOXACIN. [Concomitant]
     Active Substance: LEVOFLOXACIN
  9. PARAPLATIN [Suspect]
     Active Substance: CARBOPLATIN
     Indication: BREAST CANCER
     Dates: start: 20160824, end: 20161219
  10. HERCEPTIN [Suspect]
     Active Substance: TRASTUZUMAB
     Indication: BREAST CANCER
     Dates: start: 20160824, end: 20161219
  11. LORAZEPAM. [Concomitant]
     Active Substance: LORAZEPAM
  12. DEXAMETHASONE. [Concomitant]
     Active Substance: DEXAMETHASONE
  13. DIAZEPAM. [Concomitant]
     Active Substance: DIAZEPAM
  14. TRIAMTERENE. [Concomitant]
     Active Substance: TRIAMTERENE

REACTIONS (1)
  - Alopecia [Not Recovered/Not Resolved]

NARRATIVE: CASE EVENT DATE: 20170619
